FAERS Safety Report 9002357 (Version 1)
Quarter: 2013Q1

REPORT INFORMATION
  Report Type: Spontaneous
  Country: MY (occurrence: MY)
  Receive Date: 20130107
  Receipt Date: 20130107
  Transmission Date: 20140127
  Serious: Yes (Other)
  Sender: FDA-Public Use
  Company Number: PHHY2009MY39658

PATIENT
  Age: 56 Year
  Sex: Female
  Weight: 82 kg

DRUGS (4)
  1. GALVUS MET [Suspect]
     Indication: TYPE 2 DIABETES MELLITUS
     Dosage: 1 DF, BID
     Route: 048
     Dates: start: 20090605
  2. ASPIRIN [Concomitant]
     Dosage: 100 MG EVERY MORNING
  3. MICARDISPLUS [Concomitant]
     Dosage: 1 DF, DAILY
  4. SIMVASTATIN [Concomitant]
     Dosage: 40 MG AT NIGHT

REACTIONS (2)
  - Blood glucose increased [Unknown]
  - Drug ineffective [Unknown]
